FAERS Safety Report 4762151-1 (Version None)
Quarter: 2005Q3

REPORT INFORMATION
  Report Type: 
  Country: None (occurrence: None)
  Receive Date: 20050906
  Receipt Date: 20050906
  Transmission Date: 20060218
  Serious: Yes (Life-Threatening, Hospitalization)
  Sender: FDA-Public Use
  Company Number: None

PATIENT
  Age: 63 Year
  Sex: Female

DRUGS (7)
  1. XELODA [Suspect]
     Indication: BREAST CANCER METASTATIC
     Dosage: SEE IMAGE
     Route: 048
     Dates: start: 20040528, end: 20050106
  2. XELODA [Suspect]
     Indication: BREAST CANCER METASTATIC
     Dosage: SEE IMAGE
     Route: 048
     Dates: start: 20050506, end: 20050518
  3. LEVOTHYROXINE [Concomitant]
  4. CELEBREX [Concomitant]
  5. EVISTA [Concomitant]
  6. ZOCOR [Concomitant]
  7. LORAZEPAM [Concomitant]

REACTIONS (4)
  - AGITATION [None]
  - LOSS OF CONSCIOUSNESS [None]
  - SINUS TACHYCARDIA [None]
  - VENTRICULAR FIBRILLATION [None]
